FAERS Safety Report 16638847 (Version 1)
Quarter: 2019Q3

REPORT INFORMATION
  Report Type: Spontaneous
  Country: US (occurrence: US)
  Receive Date: 20190726
  Receipt Date: 20190726
  Transmission Date: 20191004
  Serious: No
  Sender: FDA-Public Use
  Company Number: US-TEVA-2019-US-1082959

PATIENT
  Sex: Female

DRUGS (3)
  1. ALPRAZOLAM. [Concomitant]
     Active Substance: ALPRAZOLAM
  2. PAROXETINE. [Concomitant]
     Active Substance: PAROXETINE
  3. TRAZODONE HYDROCHLORIDE. [Suspect]
     Active Substance: TRAZODONE HYDROCHLORIDE
     Indication: SLEEP DISORDER
     Route: 065
     Dates: start: 2017

REACTIONS (4)
  - Overdose [Unknown]
  - Loss of personal independence in daily activities [Unknown]
  - Personality change [Unknown]
  - Asthenia [Unknown]

NARRATIVE: CASE EVENT DATE: 2017
